FAERS Safety Report 6405885-5 (Version None)
Quarter: 2009Q4

REPORT INFORMATION
  Report Type: 
  Country: None (occurrence: None)
  Receive Date: 20091016
  Receipt Date: 20091016
  Transmission Date: 20100525
  Serious: Yes (Life-Threatening, Other)
  Sender: FDA-Public Use
  Company Number: None

PATIENT
  Age: 50 Year
  Sex: Female
  Weight: 83.9154 kg

DRUGS (1)
  1. REMERON [Suspect]
     Indication: DEPRESSION
     Dates: start: 20060327, end: 20060411

REACTIONS (3)
  - FEELING ABNORMAL [None]
  - LUNG INFECTION [None]
  - SINUSITIS [None]
